FAERS Safety Report 5288356-1 (Version None)
Quarter: 2007Q1

REPORT INFORMATION
  Report Type: 
  Country: None (occurrence: None)
  Receive Date: 20070118
  Receipt Date: 20060926
  Transmission Date: 20070707
  Serious: Yes (Other)
  Sender: FDA-Public Use
  Company Number: HQWYE349628SEP06

PATIENT
  Age: 55 Year
  Sex: Female
  Weight: 83.99 kg

DRUGS (5)
  1. ADVIL PM [Suspect]
     Indication: INSOMNIA
     Dosage: 2 CAPLETS DAILY AT BEDTIME; ORAL
     Route: 048
     Dates: start: 20060901, end: 20060901
  2. ADVIL PM [Suspect]
     Indication: PAIN
     Dosage: 2 CAPLETS DAILY AT BEDTIME; ORAL
     Route: 048
     Dates: start: 20060901, end: 20060901
  3. AMITRIPTYLINE HCL [Concomitant]
  4. UNSPECIFIED VITAMINS (UNSPECIFIED VITAMINS) [Concomitant]
  5. PRILOSEC [Concomitant]

REACTIONS (1)
  - DRUG INEFFECTIVE [None]
